FAERS Safety Report 12707313 (Version 1)
Quarter: 2016Q3

REPORT INFORMATION
  Report Type: Spontaneous
  Country: US (occurrence: US)
  Receive Date: 20160901
  Receipt Date: 20160901
  Transmission Date: 20161109
  Serious: No
  Sender: FDA-Public Use
  Company Number: US-THE MEDICINES COMPANY-US-MDCO-16-00235

PATIENT

DRUGS (3)
  1. ORBACTIV [Suspect]
     Active Substance: ORITAVANCIN
     Indication: ABSCESS LIMB
     Dosage: NOT REPORTED
     Dates: start: 20150607
  2. ORBACTIV [Suspect]
     Active Substance: ORITAVANCIN
     Indication: RASH
  3. ORBACTIV [Suspect]
     Active Substance: ORITAVANCIN
     Indication: CANDIDA INFECTION

REACTIONS (2)
  - Off label use [Unknown]
  - No adverse event [Unknown]
